FAERS Safety Report 19648421 (Version 1)
Quarter: 2021Q3

REPORT INFORMATION
  Report Type: Spontaneous
  Country: FR (occurrence: FR)
  Receive Date: 20210802
  Receipt Date: 20210802
  Transmission Date: 20211014
  Serious: Yes (Hospitalization)
  Sender: FDA-Public Use
  Company Number: FR-SA-2021SA251444

PATIENT
  Age: 66 Year
  Sex: Male
  Weight: 70 kg

DRUGS (1)
  1. TOUJEO [Suspect]
     Active Substance: INSULIN GLARGINE
     Indication: INSULIN-REQUIRING TYPE 2 DIABETES MELLITUS
     Dosage: 28 IU, QD
     Route: 058
     Dates: start: 20160601, end: 20210601

REACTIONS (3)
  - Action tremor [Recovered/Resolved with Sequelae]
  - Resting tremor [Recovered/Resolved with Sequelae]
  - Hypoglycaemia [Recovered/Resolved with Sequelae]

NARRATIVE: CASE EVENT DATE: 2020
